FAERS Safety Report 4411789-X (Version None)
Quarter: 2004Q3

REPORT INFORMATION
  Report Type: 
  Country: None (occurrence: None)
  Receive Date: 20040730
  Receipt Date: 20040723
  Transmission Date: 20050211
  Serious: Yes (Death)
  Sender: FDA-Public Use
  Company Number: 200415587US

PATIENT
  Sex: Female

DRUGS (11)
  1. LOVENOX [Suspect]
     Indication: DISSEMINATED INTRAVASCULAR COAGULATION
     Route: 058
     Dates: start: 20031025, end: 20031103
  2. ANALGESIC LIQ [Concomitant]
     Dosage: DOSE: UNK
  3. SKELAXIN [Concomitant]
     Dosage: DOSE: UNK
  4. VISTARIL [Concomitant]
     Dosage: DOSE: UNK
  5. ROCEPHIN [Concomitant]
     Dosage: DOSE: UNK
  6. NYSTATIN [Concomitant]
     Indication: RASH
     Dosage: DOSE: UNK
     Route: 051
  7. FERROUS SULFATE TAB [Concomitant]
     Dosage: DOSE: UNK
  8. DIFLUCAN [Concomitant]
     Indication: FUNGAL INFECTION
     Dosage: DOSE: UNK
     Dates: start: 20041027, end: 20041031
  9. SYNERCID [Concomitant]
     Dosage: DOSE: UNK
  10. MORPHINE [Concomitant]
     Dosage: DOSE: UNK
  11. HYDROCODONE [Concomitant]
     Dosage: DOSE: UNK

REACTIONS (5)
  - CARDIO-RESPIRATORY ARREST [None]
  - HAEMATOCRIT DECREASED [None]
  - HAEMOGLOBIN DECREASED [None]
  - PLATELET COUNT DECREASED [None]
  - RED BLOOD CELL COUNT DECREASED [None]
